FAERS Safety Report 25817495 (Version 1)
Quarter: 2025Q3

REPORT INFORMATION
  Report Type: Report from Study
  Country: JP (occurrence: JP)
  Receive Date: 20250918
  Receipt Date: 20250918
  Transmission Date: 20251020
  Serious: Yes (Death)
  Sender: SHIONOGI
  Company Number: JP-shionogi-202500009949

PATIENT
  Age: 65 Year
  Sex: Female
  Weight: 80.0 kg

DRUGS (12)
  1. CEFIDEROCOL [Suspect]
     Active Substance: CEFIDEROCOL
     Indication: Pseudomonal bacteraemia
     Route: 041
     Dates: start: 20241204, end: 20241215
  2. MEROPENEM [Concomitant]
     Active Substance: MEROPENEM
     Indication: Pseudomonal bacteraemia
     Route: 065
     Dates: start: 20241202, end: 20241204
  3. CEFEPIME [Concomitant]
     Active Substance: CEFEPIME HYDROCHLORIDE
     Indication: Pseudomonal bacteraemia
     Route: 065
     Dates: start: 20241123, end: 20241202
  4. VANCOMYCIN [Concomitant]
     Active Substance: VANCOMYCIN
     Indication: Pseudomonal bacteraemia
     Route: 065
     Dates: start: 20241129, end: 20241215
  5. RINACETO D [Concomitant]
     Indication: Pseudomonal bacteraemia
     Route: 065
     Dates: start: 20241124, end: 20241215
  6. VENILON [Concomitant]
     Active Substance: HUMAN IMMUNOGLOBULIN G
     Indication: Pseudomonal bacteraemia
     Route: 065
     Dates: start: 20241204, end: 20241206
  7. FENTANYL [Concomitant]
     Active Substance: FENTANYL
     Indication: Pseudomonal bacteraemia
     Route: 065
     Dates: start: 20241203, end: 20241215
  8. PITRESSIN [Concomitant]
     Active Substance: VASOPRESSIN
     Indication: Pseudomonal bacteraemia
     Route: 065
     Dates: start: 20241202, end: 20241205
  9. AMINO ACIDS\DEXTROSE\ELECTROLYTES NOS\MINERALS\VITAMINS [Concomitant]
     Active Substance: AMINO ACIDS\DEXTROSE\ELECTROLYTES NOS\MINERALS\VITAMINS
     Indication: Pseudomonal bacteraemia
     Route: 065
     Dates: start: 20241129, end: 20241215
  10. PROPOFOL [Concomitant]
     Active Substance: PROPOFOL
     Indication: Pseudomonal bacteraemia
     Route: 065
     Dates: start: 20241203, end: 20241215
  11. FOSFLUCONAZOLE [Concomitant]
     Active Substance: FOSFLUCONAZOLE
     Indication: Pseudomonal bacteraemia
     Route: 065
     Dates: start: 20241128, end: 20241215
  12. NOVOLIN R [Concomitant]
     Active Substance: INSULIN HUMAN
     Indication: Pseudomonal bacteraemia
     Route: 065
     Dates: start: 20241203, end: 20241215

REACTIONS (1)
  - Pseudomonal bacteraemia [Fatal]

NARRATIVE: CASE EVENT DATE: 20241215
